FAERS Safety Report 20575262 (Version 10)
Quarter: 2023Q4

REPORT INFORMATION
  Report Type: Spontaneous
  Country: US (occurrence: US)
  Receive Date: 20220310
  Receipt Date: 20231013
  Transmission Date: 20240110
  Serious: Yes (Disabling, Other)
  Sender: FDA-Public Use
  Company Number: US-ORGANON-O2203USA000828

PATIENT
  Sex: Male

DRUGS (1)
  1. SINGULAIR [Suspect]
     Active Substance: MONTELUKAST SODIUM
     Indication: Rhinitis
     Dosage: TAKE 1 TABLET BY ORAL ROUTE EVERY DAY IN THE EVENING
     Route: 048
     Dates: start: 2018, end: 2021

REACTIONS (13)
  - Neuropsychological symptoms [Not Recovered/Not Resolved]
  - Panic disorder [Not Recovered/Not Resolved]
  - Generalised anxiety disorder [Not Recovered/Not Resolved]
  - Major depression [Unknown]
  - Suicidal ideation [Recovered/Resolved]
  - Depression [Recovered/Resolved]
  - Nightmare [Recovered/Resolved]
  - Insomnia [Recovered/Resolved]
  - Feeling of despair [Recovered/Resolved]
  - Nasal septum deviation [Unknown]
  - Sinusitis [Unknown]
  - Fear [Unknown]
  - Obsessive thoughts [Unknown]

NARRATIVE: CASE EVENT DATE: 20180101
